FAERS Safety Report 13949018 (Version 1)
Quarter: 2017Q3

REPORT INFORMATION
  Report Type: Spontaneous
  Country: US (occurrence: US)
  Receive Date: 20170908
  Receipt Date: 20170908
  Transmission Date: 20171128
  Serious: Yes (Death, Other)
  Sender: FDA-Public Use
  Company Number: PHEH2017US028705

PATIENT
  Sex: Female

DRUGS (1)
  1. PREDNISONE TABLETS USP [Suspect]
     Active Substance: PREDNISONE
     Indication: PRODUCT USED FOR UNKNOWN INDICATION
     Route: 065

REACTIONS (4)
  - Nasopharyngitis [Unknown]
  - Alopecia [Unknown]
  - Pneumonia [Fatal]
  - Immunodeficiency [Unknown]

NARRATIVE: CASE EVENT DATE: 19770122
